FAERS Safety Report 4361358-5 (Version None)
Quarter: 2004Q2

REPORT INFORMATION
  Report Type: 
  Country: None (occurrence: None)
  Receive Date: 20040519
  Receipt Date: 20040519
  Transmission Date: 20050107
  Serious: Yes (Hospitalization)
  Sender: FDA-Public Use
  Company Number: None

PATIENT
  Age: 85 Year
  Sex: Female
  Weight: 55.3388 kg

DRUGS (3)
  1. FOSAMAX [Suspect]
     Indication: OSTEOPOROSIS
     Dosage: 70 MG ONCE A WEE ORAL
     Route: 048
     Dates: start: 20030701, end: 20040211
  2. ASPIRIN [Concomitant]
  3. MULTI-VITAMIN [Concomitant]

REACTIONS (7)
  - ANAEMIA [None]
  - ASTHENIA [None]
  - DIZZINESS [None]
  - FAECAL OCCULT BLOOD POSITIVE [None]
  - FAECES DISCOLOURED [None]
  - HYPERHIDROSIS [None]
  - OESOPHAGITIS [None]
